FAERS Safety Report 10779720 (Version 6)
Quarter: 2021Q1

REPORT INFORMATION
  Report Type: Spontaneous
  Country: US (occurrence: US)
  Receive Date: 20150210
  Receipt Date: 20210129
  Transmission Date: 20210419
  Serious: Yes (Other)
  Sender: FDA-Public Use
  Company Number: US-PFIZER INC-2015053831

PATIENT
  Age: 60 Year
  Sex: Female
  Weight: 68.03 kg

DRUGS (20)
  1. LYRICA [Suspect]
     Active Substance: PREGABALIN
     Dosage: 75MG AT 1 AT LUNCH 2 AT EVENING
     Route: 048
  2. LOMOTIL [Concomitant]
     Active Substance: ATROPINE SULFATE\DIPHENOXYLATE HYDROCHLORIDE
     Indication: DIARRHOEA
     Dosage: 2 TABLETS AFTER FIRST LOOSE STOOL, 1 AFTER EACH LOOSE STOOL, NOT EXCEED 8 TABS IN 24HR PERIOD
     Route: 048
     Dates: start: 20150915
  3. LYRICA [Suspect]
     Active Substance: PREGABALIN
     Dosage: 75 MG,1 CAPSULE IN THE MORNING, 1 CAPSULE AT LUNCH, 2 CAPSULES IN THE EVENING
     Route: 048
     Dates: start: 20130326
  4. ZOLOFT [Concomitant]
     Active Substance: SERTRALINE HYDROCHLORIDE
     Dosage: 25 MG, 1X/DAY
     Route: 048
     Dates: start: 20100928
  5. LYRICA [Suspect]
     Active Substance: PREGABALIN
     Dosage: 75 MG CAPSULE TAKE 1 CAPSULE IN THE MORNING, 1 CAPSULE AT LUNCH AND 2 CAPSULES IN THE EVENING
     Route: 048
  6. ESTRADIOL. [Concomitant]
     Active Substance: ESTRADIOL
     Dosage: 0.5 MG, ALTERNATE DAY (EVERY OTHER DAY)
     Route: 048
     Dates: start: 20100209
  7. LYRICA [Suspect]
     Active Substance: PREGABALIN
     Indication: FIBROMYALGIA
     Dosage: UNK, 3X/DAY
     Route: 048
  8. MONTELUKAST SODIUM. [Concomitant]
     Active Substance: MONTELUKAST SODIUM
     Dosage: 1 DF, 1X/DAY, AT BEDTIME
     Route: 048
     Dates: start: 20140728
  9. PROMETHAZINE HCL [Concomitant]
     Active Substance: PROMETHAZINE HYDROCHLORIDE
     Indication: NAUSEA
     Dosage: 25 MG, EVERY 6 HOURS AS NEEDED
     Route: 048
     Dates: start: 20160114
  10. ALDACTONE [Concomitant]
     Active Substance: SPIRONOLACTONE
     Dosage: 12.5 MG, DAILY
     Route: 048
     Dates: start: 20140220
  11. LYRICA [Suspect]
     Active Substance: PREGABALIN
     Indication: NERVE INJURY
     Dosage: 75MG: 1 AT LUNCH/MORNIG, 2 AT EVENING/BEDTIME
     Route: 048
  12. LYRICA [Suspect]
     Active Substance: PREGABALIN
     Indication: RHEUMATOID ARTHRITIS
     Dosage: 75MG: 1 PO QAM, 1 PO Q LUNCH AND 1 PO QHS
     Route: 048
  13. XYZAL [Concomitant]
     Active Substance: LEVOCETIRIZINE DIHYDROCHLORIDE
     Dosage: 5 MG, 1X/DAY (BEDTIME)
     Route: 048
     Dates: start: 20150305
  14. OMEPRAZOLE. [Concomitant]
     Active Substance: OMEPRAZOLE
     Dosage: 1 DF, 1X/DAY
     Route: 048
     Dates: start: 20120830
  15. OXYCODONE AND ACETAMINOPHEN [Concomitant]
     Active Substance: ACETAMINOPHEN\OXYCODONE HYDROCHLORIDE
     Indication: PAIN
     Dosage: OXYCODONE: 7.5MG; ACETAMINOPHEN: 325MG, 1 TABLET EVERY 4 HOURS PRN
     Route: 048
     Dates: start: 20150818
  16. ZANTAC [Concomitant]
     Active Substance: RANITIDINE HYDROCHLORIDE
     Dosage: 300 MG, DAILY
     Route: 048
     Dates: start: 20160114
  17. REQUIP [Concomitant]
     Active Substance: ROPINIROLE HYDROCHLORIDE
     Dosage: 0.5 MG, 1X/DAY (AT BEDTIME)
     Route: 048
     Dates: start: 20130314
  18. GLUCOSAMINE [Concomitant]
     Active Substance: GLUCOSAMINE
     Dosage: 2 DF, DAILY
     Route: 048
     Dates: start: 20100209
  19. ATIVAN [Concomitant]
     Active Substance: LORAZEPAM
     Dosage: 0.5 MG, AS NEEDED (3 TIMES DAILY AS NEEDED)
     Route: 048
     Dates: start: 20030611
  20. MECLIZINE HCL [Concomitant]
     Active Substance: MECLIZINE HYDROCHLORIDE
     Indication: DIZZINESS
     Dosage: 25 MG, AS NEEDED (3 TIMES DAILY AS NEEDED)
     Route: 048
     Dates: start: 20120110

REACTIONS (2)
  - Bronchitis [Recovered/Resolved]
  - Rib fracture [Not Recovered/Not Resolved]

NARRATIVE: CASE EVENT DATE: 20150102
